FAERS Safety Report 11508367 (Version 1)
Quarter: 2015Q3

REPORT INFORMATION
  Report Type: Spontaneous
  Country: TR (occurrence: TR)
  Receive Date: 20150915
  Receipt Date: 20150915
  Transmission Date: 20151125
  Serious: Yes (Hospitalization, Other)
  Sender: FDA-Public Use
  Company Number: TR-GLAXOSMITHKLINE-TR2015GSK130774

PATIENT
  Age: 31 Year
  Sex: Female

DRUGS (1)
  1. BUPROPION. [Suspect]
     Active Substance: BUPROPION
     Indication: MAJOR DEPRESSION
     Dosage: 300 MG, QD

REACTIONS (4)
  - Urticaria [Unknown]
  - Angioedema [Unknown]
  - Swelling [Unknown]
  - Skin plaque [Unknown]
